FAERS Safety Report 9634253 (Version 3)
Quarter: 2013Q4

REPORT INFORMATION
  Report Type: Report from Study
  Country: CA (occurrence: CA)
  Receive Date: 20131021
  Receipt Date: 20131216
  Transmission Date: 20140711
  Serious: Yes (Other)
  Sender: FDA-Public Use
  Company Number: CA-JNJFOC-20131010089

PATIENT
  Age: 52 Year
  Sex: Female
  Weight: 115 kg

DRUGS (5)
  1. STELARA [Suspect]
     Indication: PSORIASIS
     Route: 058
     Dates: start: 20090112
  2. AVALIDE [Concomitant]
     Dosage: 150/125 MG
     Route: 048
     Dates: end: 200501
  3. DOVOBET [Concomitant]
     Dosage: 150/125 MG
     Route: 061
     Dates: start: 20110913
  4. XAMIOL [Concomitant]
     Dosage: 150/125 MG
     Route: 061
     Dates: start: 20110913
  5. ULORIC [Concomitant]
     Dosage: 150/125 MG
     Route: 048
     Dates: start: 20120626

REACTIONS (1)
  - Malignant melanoma in situ [Recovered/Resolved]
